FAERS Safety Report 10872024 (Version 1)
Quarter: 2015Q1

REPORT INFORMATION
  Report Type: Spontaneous
  Country: US (occurrence: None)
  Receive Date: 20150223
  Receipt Date: 20150223
  Transmission Date: 20150721
  Serious: Yes (Disabling, Other)
  Sender: FDA-Public Use
  Company Number: None

PATIENT
  Age: 39 Year
  Sex: Male
  Weight: 104.33 kg

DRUGS (15)
  1. PRAVASTATIN [Concomitant]
     Active Substance: PRAVASTATIN\PRAVASTATIN SODIUM
  2. GLIMEPIRIDE. [Concomitant]
     Active Substance: GLIMEPIRIDE
  3. VITAMIN B12 [Concomitant]
     Active Substance: CYANOCOBALAMIN
  4. NEXIUM [Concomitant]
     Active Substance: ESOMEPRAZOLE MAGNESIUM
  5. D3 [Concomitant]
     Active Substance: 25-HYDROXYCHOLECALCIFEROL, 5-TRANS-
  6. LIPITOR [Suspect]
     Active Substance: ATORVASTATIN CALCIUM
  7. WARFARIN [Concomitant]
     Active Substance: WARFARIN
  8. DIAZEPAM. [Concomitant]
     Active Substance: DIAZEPAM
  9. CYMBALTA [Concomitant]
     Active Substance: DULOXETINE HYDROCHLORIDE
  10. MULTI VITAMIN [Concomitant]
     Active Substance: VITAMINS
  11. MICARDIS [Concomitant]
     Active Substance: TELMISARTAN
  12. LOVAZA [Concomitant]
     Active Substance: OMEGA-3-ACID ETHYL ESTERS
  13. ZOCOR [Suspect]
     Active Substance: SIMVASTATIN
     Indication: BLOOD CHOLESTEROL INCREASED
     Dosage: ONE PILL
     Dates: start: 20060601, end: 20130701
  14. MAXALT [Concomitant]
     Active Substance: RIZATRIPTAN BENZOATE
  15. UBIQUINOL [Concomitant]

REACTIONS (9)
  - Weight increased [None]
  - Renal impairment [None]
  - Memory impairment [None]
  - Hepatic enzyme increased [None]
  - Irritability [None]
  - Blood glucose increased [None]
  - Thrombosis [None]
  - Blood pressure increased [None]
  - Fibromyalgia [None]

NARRATIVE: CASE EVENT DATE: 20050601
